FAERS Safety Report 4774005-5 (Version None)
Quarter: 2005Q3

REPORT INFORMATION
  Report Type: 
  Country: None (occurrence: None)
  Receive Date: 20050919
  Receipt Date: 20050907
  Transmission Date: 20060218
  Serious: Yes (Disabling)
  Sender: FDA-Public Use
  Company Number: HQWYE336909SEP05

PATIENT
  Age: 43 Year
  Sex: Female

DRUGS (2)
  1. EFFEXOR [Suspect]
     Indication: DEPRESSION
  2. WELLBUTRIN [Concomitant]

REACTIONS (21)
  - ACTIVITIES OF DAILY LIVING IMPAIRED [None]
  - ANGER [None]
  - ASTHENIA [None]
  - CHILLS [None]
  - CRYING [None]
  - DISTURBANCE IN ATTENTION [None]
  - DRUG DEPENDENCE [None]
  - DRUG WITHDRAWAL SYNDROME [None]
  - FEELING ABNORMAL [None]
  - FEELING OF BODY TEMPERATURE CHANGE [None]
  - HALLUCINATION, AUDITORY [None]
  - HALLUCINATION, VISUAL [None]
  - IRRITABILITY [None]
  - MOOD SWINGS [None]
  - MUSCLE SPASMS [None]
  - NIGHTMARE [None]
  - PAIN [None]
  - RETCHING [None]
  - SOMNOLENCE [None]
  - TEMPERATURE REGULATION DISORDER [None]
  - WEIGHT INCREASED [None]
